FAERS Safety Report 7509108-5 (Version None)
Quarter: 2011Q2

REPORT INFORMATION
  Report Type: 
  Country: None (occurrence: None)
  Receive Date: 20110527
  Receipt Date: 20110517
  Transmission Date: 20111010
  Serious: Yes (Other)
  Sender: FDA-Public Use
  Company Number: US-AMGEN-USASP2011025593

PATIENT
  Age: 46 Year
  Sex: Female

DRUGS (2)
  1. ENBREL [Suspect]
     Indication: RHEUMATOID ARTHRITIS
     Dosage: 50 MG, QWK
     Dates: start: 20090821
  2. AZULFIDINE [Concomitant]
     Dosage: 1 MG, QD
     Dates: start: 20060101

REACTIONS (8)
  - AMNESIA [None]
  - RHEUMATOID ARTHRITIS [None]
  - DRUG INEFFECTIVE [None]
  - HAEMORRHOIDS [None]
  - IMPAIRED HEALING [None]
  - NASOPHARYNGITIS [None]
  - EPILEPSY [None]
  - MUSCLE TWITCHING [None]
